FAERS Safety Report 24018731 (Version 2)
Quarter: 2024Q3

REPORT INFORMATION
  Report Type: Spontaneous
  Country: US (occurrence: US)
  Receive Date: 20240627
  Receipt Date: 20240722
  Transmission Date: 20241016
  Serious: Yes (Death, Hospitalization, Other)
  Sender: UCB
  Company Number: US-UCBSA-2024032677

PATIENT
  Age: 76 Year
  Sex: Male

DRUGS (3)
  1. CIMZIA [Suspect]
     Active Substance: CERTOLIZUMAB PEGOL
     Indication: Crohn^s disease
     Dosage: 400 MILLIGRAM, EV 4 WEEKS
     Route: 058
     Dates: start: 201802
  2. SANDOSTATIN LAR DEPOT [Concomitant]
     Active Substance: OCTREOTIDE ACETATE
     Indication: Product used for unknown indication
     Dosage: UNK
  3. GATTEX [Concomitant]
     Active Substance: TEDUGLUTIDE\WATER
     Indication: Product used for unknown indication
     Dosage: UNK

REACTIONS (3)
  - Death [Fatal]
  - Hypovolaemic shock [Unknown]
  - Cardiac arrest [Unknown]

NARRATIVE: CASE EVENT DATE: 20240613
